FAERS Safety Report 17164622 (Version 2)
Quarter: 2020Q1

REPORT INFORMATION
  Report Type: Spontaneous
  Country: CA (occurrence: CA)
  Receive Date: 20191217
  Receipt Date: 20200217
  Transmission Date: 20200409
  Serious: Yes (Other)
  Sender: FDA-Public Use
  Company Number: CA-OCTA-NGAM23119CA

PATIENT
  Age: 60 Year
  Sex: Female

DRUGS (1)
  1. PANZYGA [Suspect]
     Active Substance: HUMAN IMMUNOGLOBULIN G
     Indication: PELVIC INFLAMMATORY DISEASE
     Route: 042
     Dates: start: 20180517, end: 20180517

REACTIONS (8)
  - Heart rate increased [Recovered/Resolved]
  - Hypoxia [Recovered/Resolved]
  - C-reactive protein increased [Recovered/Resolved]
  - Anaphylactic reaction [Recovered/Resolved]
  - Blood potassium decreased [Recovered/Resolved]
  - Dyspnoea [Recovered/Resolved]
  - Flushing [Recovered/Resolved]
  - Blood pressure increased [Recovered/Resolved]

NARRATIVE: CASE EVENT DATE: 20180517
